FAERS Safety Report 5118199-0 (Version None)
Quarter: 2006Q3

REPORT INFORMATION
  Report Type: 
  Country: None (occurrence: None)
  Receive Date: 20060926
  Receipt Date: 20060914
  Transmission Date: 20061208
  Serious: No
  Sender: FDA-Public Use
  Company Number: GB200609003024

PATIENT
  Age: 53 Year
  Sex: Male

DRUGS (2)
  1. ZYPREXA [Suspect]
     Indication: BIPOLAR DISORDER
     Dosage: 10 MG, ORAL
     Route: 048
     Dates: start: 20030101
  2. VALPROATE SODIUM [Concomitant]

REACTIONS (3)
  - EOSINOPHIL COUNT INCREASED [None]
  - NEUTROPHIL COUNT INCREASED [None]
  - WHITE BLOOD CELL COUNT INCREASED [None]
